FAERS Safety Report 7600448-8 (Version None)
Quarter: 2011Q3

REPORT INFORMATION
  Report Type: 
  Country: None (occurrence: None)
  Receive Date: 20110711
  Receipt Date: 20110627
  Transmission Date: 20111222
  Serious: Yes (Other)
  Sender: FDA-Public Use
  Company Number: PHHY2011BR57135

PATIENT
  Sex: Male

DRUGS (3)
  1. DIOVAN [Suspect]
     Indication: HYPERTENSION
     Dosage: 160 MG, UNK
  2. CITALOPRAM HYDROBROMIDE [Concomitant]
  3. CILOSTAZOL [Concomitant]
     Indication: CARDIOVASCULAR INSUFFICIENCY

REACTIONS (3)
  - ULCER [None]
  - DEMENTIA ALZHEIMER'S TYPE [None]
  - HAEMORRHAGE [None]
